FAERS Safety Report 7296744-7 (Version None)
Quarter: 2011Q1

REPORT INFORMATION
  Report Type: 
  Country: None (occurrence: None)
  Receive Date: 20110216
  Receipt Date: 20110214
  Transmission Date: 20110831
  Serious: Yes (Congenital Anomaly)
  Sender: FDA-Public Use
  Company Number: A0871470A

PATIENT
  Sex: Male
  Weight: 3.3 kg

DRUGS (6)
  1. PRENATAL VITAMINS [Concomitant]
  2. PAXIL [Suspect]
     Indication: DEPRESSION
     Dosage: 40MG PER DAY
     Route: 064
  3. GUAIFENESIN [Concomitant]
  4. ALBUTEROL [Concomitant]
  5. NORVASC [Concomitant]
     Dates: end: 20010906
  6. ALDOMET [Concomitant]
     Dates: start: 20010906

REACTIONS (3)
  - CARDIAC SEPTAL DEFECT [None]
  - CARDIAC MURMUR [None]
  - DRUG EXPOSURE DURING PREGNANCY [None]
